FAERS Safety Report 9387958 (Version 2)
Quarter: 2013Q3

REPORT INFORMATION
  Report Type: Spontaneous
  Country: US (occurrence: US)
  Receive Date: 20130708
  Receipt Date: 20130906
  Transmission Date: 20140515
  Serious: Yes (Other)
  Sender: FDA-Public Use
  Company Number: US-GLAXOSMITHKLINE-A1029252A

PATIENT
  Age: 37 Year
  Sex: Female
  Weight: 98.6 kg

DRUGS (12)
  1. BENLYSTA [Suspect]
     Indication: SYSTEMIC LUPUS ERYTHEMATOSUS
     Dosage: 120MG AS REQUIRED
     Route: 042
     Dates: start: 20121120, end: 20130416
  2. METHOTREXATE [Concomitant]
     Indication: SYSTEMIC LUPUS ERYTHEMATOSUS
     Dosage: 22.5MG WEEKLY
     Route: 048
     Dates: start: 2009
  3. PLAQUENIL [Concomitant]
     Indication: SYSTEMIC LUPUS ERYTHEMATOSUS
     Dosage: 400MG PER DAY
     Route: 048
     Dates: start: 2008
  4. PREDNISONE [Concomitant]
  5. FOLIC ACID [Concomitant]
  6. CYMBALTA [Concomitant]
  7. METOCLOPRAMIDE [Concomitant]
  8. LORTAB [Concomitant]
  9. NIFEDICAL XL [Concomitant]
  10. NUVIGIL [Concomitant]
  11. TRAMADOL [Concomitant]
  12. SPIRONOLACTONE [Concomitant]

REACTIONS (2)
  - Hip fracture [Recovered/Resolved]
  - Arthralgia [Recovered/Resolved]
